FAERS Safety Report 14630715 (Version 1)
Quarter: 2018Q1

REPORT INFORMATION
  Report Type: Spontaneous
  Country: US (occurrence: US)
  Receive Date: 20180313
  Receipt Date: 20180313
  Transmission Date: 20180509
  Serious: Yes (Other)
  Sender: FDA-Public Use
  Company Number: US-LEXICON PHARMACEUTICALS, INC-18-1606-00257

PATIENT
  Sex: Female

DRUGS (17)
  1. LEXAPRO [Concomitant]
     Active Substance: ESCITALOPRAM OXALATE
  2. SANDOSTATIN [Concomitant]
     Active Substance: OCTREOTIDE ACETATE
  3. VITAMIN D [Concomitant]
     Active Substance: CHOLECALCIFEROL
  4. LEVOTHYROXINE SODIUM. [Concomitant]
     Active Substance: LEVOTHYROXINE SODIUM
  5. LASIX [Concomitant]
     Active Substance: FUROSEMIDE
  6. CALCIUM [Concomitant]
     Active Substance: CALCIUM
  7. TOPAMAX [Concomitant]
     Active Substance: TOPIRAMATE
  8. FERROUS SULFATE. [Concomitant]
     Active Substance: FERROUS SULFATE
  9. PANTOPRAZOLE SODIUM. [Concomitant]
     Active Substance: PANTOPRAZOLE SODIUM
  10. TELOTRISTAT ETHYL [Suspect]
     Active Substance: TELOTRISTAT ETHYL
     Indication: CARCINOID SYNDROME
     Route: 048
     Dates: start: 20180108
  11. VITAMIN B [Concomitant]
     Active Substance: VITAMIN B
  12. CARVEDILOL. [Concomitant]
     Active Substance: CARVEDILOL
  13. LETROZOLE. [Concomitant]
     Active Substance: LETROZOLE
  14. XGEVA [Concomitant]
     Active Substance: DENOSUMAB
  15. ASPIRIN. [Concomitant]
     Active Substance: ASPIRIN
  16. ISOSORBIDE DINITRATE. [Concomitant]
     Active Substance: ISOSORBIDE DINITRATE
  17. MAGNESIUM OXIDE. [Concomitant]
     Active Substance: MAGNESIUM OXIDE

REACTIONS (2)
  - Cardiac valve disease [Unknown]
  - Muscle spasms [Unknown]

NARRATIVE: CASE EVENT DATE: 2018
